FAERS Safety Report 9573193 (Version 1)
Quarter: 2013Q4

REPORT INFORMATION
  Report Type: Spontaneous
  Country: US (occurrence: US)
  Receive Date: 20131001
  Receipt Date: 20131001
  Transmission Date: 20140711
  Serious: No
  Sender: FDA-Public Use
  Company Number: US-PURDUE-USA-2012-0082447

PATIENT
  Age: 76 Year
  Sex: Female

DRUGS (2)
  1. BUTRANS [Suspect]
     Indication: PRODUCT USED FOR UNKNOWN INDICATION
     Dosage: 20 MCG, Q1H
     Route: 062
  2. BUTRANS [Suspect]
     Dosage: 10 MCG, Q1H
     Route: 062

REACTIONS (6)
  - Inadequate analgesia [Unknown]
  - Drug effect decreased [Unknown]
  - Drug ineffective [Unknown]
  - Application site pruritus [Unknown]
  - Pain [Unknown]
  - Dermatitis contact [Unknown]
